FAERS Safety Report 17403891 (Version 2)
Quarter: 2020Q1

REPORT INFORMATION
  Report Type: Spontaneous
  Country: DE (occurrence: DE)
  Receive Date: 20200211
  Receipt Date: 20200213
  Transmission Date: 20200409
  Serious: Yes (Other)
  Sender: FDA-Public Use
  Company Number: DE-MYLANLABS-2020M1015731

PATIENT
  Sex: Male

DRUGS (1)
  1. CANDESARTAN. [Suspect]
     Active Substance: CANDESARTAN
     Indication: PRODUCT USED FOR UNKNOWN INDICATION
     Dosage: 8 MG
     Route: 065
     Dates: start: 2019

REACTIONS (3)
  - Oedema peripheral [Unknown]
  - Blood potassium increased [Unknown]
  - Limb discomfort [Unknown]

NARRATIVE: CASE EVENT DATE: 2019
